FAERS Safety Report 25271296 (Version 1)
Quarter: 2025Q2

REPORT INFORMATION
  Report Type: Spontaneous
  Country: US (occurrence: US)
  Receive Date: 20250506
  Receipt Date: 20250506
  Transmission Date: 20250717
  Serious: Yes (Other)
  Sender: COOPERSURGICAL
  Company Number: US-COOPERSURGICAL, INC.-2025CPS003347

PATIENT
  Age: 25 Year
  Sex: Female
  Weight: 81.633 kg

DRUGS (3)
  1. PARAGARD T 380A [Suspect]
     Active Substance: COPPER
     Route: 015
     Dates: start: 20101201, end: 20200220
  2. DIAMOX SEQUELS [Concomitant]
     Active Substance: ACETAZOLAMIDE
     Dates: start: 20000101, end: 20200301
  3. CLONIDINE [Concomitant]
     Active Substance: CLONIDINE
     Dates: start: 20080101

REACTIONS (19)
  - Idiopathic intracranial hypertension [Recovered/Resolved]
  - Brain oedema [Recovered/Resolved]
  - Papilloedema [Recovered/Resolved]
  - Drug dependence [Recovered/Resolved]
  - Reproductive complication associated with device [Not Recovered/Not Resolved]
  - Infertility female [Not Recovered/Not Resolved]
  - Abortion spontaneous [Recovered/Resolved]
  - Device breakage [Recovered/Resolved]
  - Foreign body in reproductive tract [Recovered/Resolved]
  - Complication of device removal [Recovered/Resolved]
  - Depression [Unknown]
  - Anxiety [Unknown]
  - Spinal pain [Unknown]
  - Urinary incontinence [Recovered/Resolved]
  - Cognitive disorder [Unknown]
  - Illness [Unknown]
  - Pain [Unknown]
  - Pelvic pain [Recovered/Resolved]
  - Abnormal uterine bleeding [Recovered/Resolved]

NARRATIVE: CASE EVENT DATE: 20110401
